FAERS Safety Report 7685255-2 (Version None)
Quarter: 2011Q3

REPORT INFORMATION
  Report Type: 
  Country: None (occurrence: None)
  Receive Date: 20110816
  Receipt Date: 20110803
  Transmission Date: 20111222
  Serious: Yes (Hospitalization, Other)
  Sender: FDA-Public Use
  Company Number: US-ELI_LILLY_AND_COMPANY-US201105005047

PATIENT
  Sex: Female
  Weight: 105.22 kg

DRUGS (6)
  1. METOPROLOL TARTRATE [Concomitant]
     Dosage: UNK
  2. HUMULIN 70/30 [Suspect]
     Indication: DIABETES MELLITUS
     Dosage: 40 U, EACH MORNING
     Dates: start: 20020101
  3. GLUCOPHAGE [Concomitant]
     Dosage: UNK
  4. LISINOPRIL [Concomitant]
     Dosage: UNK
  5. HUMULIN 70/30 [Suspect]
     Dosage: 30 U, EACH EVENING
     Dates: start: 20020101
  6. PLAVIX [Concomitant]
     Dosage: UNK

REACTIONS (2)
  - CORONARY ARTERY DISEASE [None]
  - INCORRECT STORAGE OF DRUG [None]
